FAERS Safety Report 21218363 (Version 1)
Quarter: 2022Q3

REPORT INFORMATION
  Report Type: Spontaneous
  Country: US (occurrence: None)
  Receive Date: 20220816
  Receipt Date: 20220816
  Transmission Date: 20221026
  Serious: No
  Sender: FDA-Public Use
  Company Number: None

PATIENT
  Age: 78 Year
  Sex: Male
  Weight: 82.1 kg

DRUGS (17)
  1. EVEROLIMUS [Suspect]
     Active Substance: EVEROLIMUS
     Indication: Renal cancer
     Dosage: FREQUENCY : DAILY;?
     Route: 048
  2. ALPHAGAN P OPHTHALMIC [Concomitant]
  3. ATORVASTATIN CALCIUM [Concomitant]
  4. CALCITRIOL CALCIUM [Concomitant]
  5. CLONIDINE [Concomitant]
  6. FLUTICASONE [Concomitant]
  7. GABAPENTIN [Concomitant]
  8. LOMOTIL [Concomitant]
  9. MESALAMINE ER [Concomitant]
  10. METOPROLOL [Concomitant]
  11. MULTIVITMIN + MINERAL [Concomitant]
  12. NORCO [Concomitant]
  13. PRESERVISION [Concomitant]
  14. AREADS 2 [Concomitant]
  15. PROCHLORPERAZINE [Concomitant]
  16. MALEATE [Concomitant]
  17. VITAMIN D3 [Concomitant]

REACTIONS (1)
  - Disease progression [None]
